FAERS Safety Report 9160091 (Version 1)
Quarter: 2013Q1

REPORT INFORMATION
  Report Type: Spontaneous
  Country: FR (occurrence: FR)
  Receive Date: 20130313
  Receipt Date: 20130313
  Transmission Date: 20140127
  Serious: Yes (Hospitalization)
  Sender: FDA-Public Use
  Company Number: FR-ELI_LILLY_AND_COMPANY-FR201303000286

PATIENT
  Sex: Male

DRUGS (7)
  1. ALIMTA [Suspect]
     Indication: LUNG ADENOCARCINOMA
     Dosage: UNK, UNKNOWN
     Route: 042
     Dates: start: 201203, end: 201207
  2. ALIMTA [Suspect]
     Dosage: UNK, UNKNOWN
     Route: 042
     Dates: start: 201207, end: 20121122
  3. CISPLATINE [Concomitant]
     Dosage: UNK, UNKNOWN
     Route: 065
     Dates: start: 201203, end: 201207
  4. SPECIAFOLDINE [Concomitant]
     Dosage: UNK, UNKNOWN
     Route: 065
  5. EPREX [Concomitant]
     Dosage: UNK, UNKNOWN
     Route: 065
  6. KARDEGIC [Concomitant]
     Dosage: UNK, UNKNOWN
     Route: 065
  7. TAHOR [Concomitant]
     Dosage: UNK, UNKNOWN
     Route: 065

REACTIONS (3)
  - Peripheral ischaemia [Not Recovered/Not Resolved]
  - Extremity necrosis [Not Recovered/Not Resolved]
  - Peripheral arterial occlusive disease [Not Recovered/Not Resolved]
